FAERS Safety Report 9055430 (Version 1)
Quarter: 2013Q1

REPORT INFORMATION
  Report Type: Spontaneous
  Country: US (occurrence: US)
  Receive Date: 20130206
  Receipt Date: 20130206
  Transmission Date: 20140127
  Serious: Yes (Other)
  Sender: FDA-Public Use
  Company Number: US-GLAXOSMITHKLINE-A1010703A

PATIENT
  Age: 67 Year
  Sex: Female

DRUGS (1)
  1. NICOTINE TRANSDERMAL SYSTEM [Suspect]
     Indication: EX-TOBACCO USER
     Dosage: 21MG UNKNOWN
     Route: 062

REACTIONS (2)
  - Angina pectoris [Recovered/Resolved]
  - Palpitations [Recovered/Resolved]
